FAERS Safety Report 5006346-0 (Version None)
Quarter: 2006Q2

REPORT INFORMATION
  Report Type: 
  Country: None (occurrence: None)
  Receive Date: 20060519
  Receipt Date: 20060510
  Transmission Date: 20061013
  Serious: Yes (Other)
  Sender: FDA-Public Use
  Company Number: AU-JNJFOC-20060502036

PATIENT
  Sex: Male

DRUGS (3)
  1. RISPERDAL [Suspect]
  2. RISPERDAL [Suspect]
  3. RISPERDAL [Suspect]
     Indication: AGGRESSION

REACTIONS (13)
  - ABDOMINAL PAIN UPPER [None]
  - CONSTIPATION [None]
  - DISTURBANCE IN ATTENTION [None]
  - EYELID OEDEMA [None]
  - FACIAL PALSY [None]
  - INCREASED UPPER AIRWAY SECRETION [None]
  - OCULAR HYPERAEMIA [None]
  - SEXUAL DYSFUNCTION [None]
  - SOMNOLENCE [None]
  - TARDIVE DYSKINESIA [None]
  - THIRST [None]
  - VISION BLURRED [None]
  - WEIGHT INCREASED [None]
